FAERS Safety Report 25724481 (Version 1)
Quarter: 2025Q3

REPORT INFORMATION
  Report Type: Spontaneous
  Country: US (occurrence: US)
  Receive Date: 20250826
  Receipt Date: 20250826
  Transmission Date: 20251021
  Serious: No
  Sender: ROCHE
  Company Number: US-ROCHE-10000368390

PATIENT
  Sex: Female

DRUGS (10)
  1. ACTEMRA ACTPEN [Suspect]
     Active Substance: TOCILIZUMAB
     Indication: Polymyalgia rheumatica
     Dosage: 162 MG/0.9 ML
     Route: 058
  2. CELECOXIB CAP 200MG [Concomitant]
  3. CYCLOBENZAPR TAB 5MG [Concomitant]
  4. HYDROXYZlNE TAB 25MG [Concomitant]
  5. METHOTREXATE TAB 2.5 [Concomitant]
  6. METOPROLOL S TBZ 25MG [Concomitant]
  7. PREDNISONE [Concomitant]
     Active Substance: PREDNISONE
  8. PREDNISONE [Concomitant]
     Active Substance: PREDNISONE
  9. PREDNISONE [Concomitant]
     Active Substance: PREDNISONE
  10. PROPRANOLOL TAB 20MG [Concomitant]

REACTIONS (3)
  - Alopecia [Not Recovered/Not Resolved]
  - Peripheral swelling [Not Recovered/Not Resolved]
  - Off label use [Unknown]
